FAERS Safety Report 4844498-3 (Version None)
Quarter: 2005Q4

REPORT INFORMATION
  Report Type: 
  Country: None (occurrence: None)
  Receive Date: 20051203
  Receipt Date: 20051004
  Transmission Date: 20060501
  Serious: Yes (Disabling)
  Sender: FDA-Public Use
  Company Number: PHBS2005AT14593

PATIENT
  Age: 61 Year
  Sex: Male

DRUGS (9)
  1. ZOMETA [Suspect]
     Indication: MULTIPLE MYELOMA
     Dosage: UNK, QMO
     Route: 042
     Dates: start: 20031101, end: 20051101
  2. THALIDOMID [Concomitant]
     Dosage: 1 DF, QD
  3. INTRON A [Concomitant]
     Dosage: 3000000 IU, Q48H
  4. ENOC [Concomitant]
     Dosage: 5 MG, QD
  5. DIAMICRON MR [Concomitant]
     Dosage: 30 MG, QD
  6. THROMBO ASS [Concomitant]
     Dosage: 100 MG, QD
  7. SORTIS ^GOEDECKE^ [Concomitant]
     Dosage: 10 MG, QD
  8. DIGIMERCK [Concomitant]
     Dosage: 0.1 MG, QD
  9. MAGNOSOLV [Concomitant]
     Dosage: 1 DF, QD

REACTIONS (3)
  - IMPAIRED HEALING [None]
  - OSTEOMYELITIS CHRONIC [None]
  - TOOTH EXTRACTION [None]
